FAERS Safety Report 5452614-8 (Version None)
Quarter: 2007Q3

REPORT INFORMATION
  Report Type: 
  Country: None (occurrence: None)
  Receive Date: 20070914
  Receipt Date: 20070904
  Transmission Date: 20080115
  Serious: Yes (Hospitalization)
  Sender: FDA-Public Use
  Company Number: GB-ASTRAZENECA-2007GB01818

PATIENT
  Age: 79 Year
  Sex: Female
  Weight: 40 kg

DRUGS (7)
  1. LISINOPRIL [Interacting]
     Route: 048
  2. BENDROFLUMETHIAZIDE [Suspect]
     Indication: HYPERTENSION
     Route: 048
     Dates: start: 20070808
  3. BENDROFLUMETHIAZIDE [Suspect]
     Route: 048
  4. ZANIDIP [Interacting]
     Indication: HYPERTENSION
     Route: 048
     Dates: start: 20070808, end: 20070810
  5. EPROSARTAN [Concomitant]
     Route: 048
     Dates: start: 20061001
  6. SALBUTAMOL [Concomitant]
  7. SERETIDE [Concomitant]

REACTIONS (6)
  - BLOOD PRESSURE SYSTOLIC INCREASED [None]
  - CHEST PAIN [None]
  - DIZZINESS [None]
  - DRUG INTERACTION [None]
  - MALAISE [None]
  - VISUAL ACUITY REDUCED [None]
